FAERS Safety Report 8133015-0 (Version None)
Quarter: 2012Q1

REPORT INFORMATION
  Report Type: 
  Country: None (occurrence: None)
  Receive Date: 20120213
  Receipt Date: 20120203
  Transmission Date: 20120608
  Serious: Yes (Hospitalization)
  Sender: FDA-Public Use
  Company Number: PHHO2011BE17338

PATIENT
  Sex: Male
  Weight: 88 kg

DRUGS (8)
  1. ENALAPRIL MALEATE [Suspect]
     Dosage: NO TREATMENT
     Dates: start: 20111026
  2. ENALAPRIL MALEATE [Suspect]
     Indication: CARDIAC FAILURE
     Dosage: 20 MG, UNK
     Route: 048
     Dates: start: 20110910
  3. NOBITEN [Concomitant]
     Indication: CARDIAC FAILURE
     Dosage: 5 MG/ DAY
     Dates: start: 20110519
  4. ALISKIREN [Suspect]
     Indication: CARDIAC FAILURE
     Dosage: 150 MG, UNK
  5. BLINDED NO TREATMENT RECEIVED [Suspect]
     Dosage: NO TREATMENT
     Dates: start: 20111026
  6. ALDACTONE [Concomitant]
     Indication: CARDIAC FAILURE
     Dosage: 25 MG/ DAY
     Dates: start: 20110225
  7. BUMETANIDE [Concomitant]
     Indication: CARDIAC FAILURE
     Dosage: 2 MG/ DAY
     Dates: start: 20110927
  8. BLINDED ALISKIREN [Suspect]
     Dosage: NO TREATMENT
     Dates: start: 20111026

REACTIONS (1)
  - CARDIAC FAILURE [None]
